FAERS Safety Report 9871421 (Version 3)
Quarter: 2014Q1

REPORT INFORMATION
  Report Type: Spontaneous
  Country: CN (occurrence: CN)
  Receive Date: 20140205
  Receipt Date: 20140312
  Transmission Date: 20141002
  Serious: Yes (Hospitalization)
  Sender: FDA-Public Use
  Company Number: CN-ABBVIE-14P-035-1196295-00

PATIENT
  Age: 37 Year
  Sex: Male
  Weight: 100 kg

DRUGS (3)
  1. HUMIRA [Suspect]
     Indication: ANKYLOSING SPONDYLITIS
     Route: 058
     Dates: start: 20131210
  2. PREDNISONE [Concomitant]
     Route: 048
     Dates: end: 20140110
  3. PREDNISONE [Concomitant]
     Route: 048
     Dates: end: 20140110

REACTIONS (4)
  - Renal impairment [Recovering/Resolving]
  - Pruritus [Unknown]
  - Oedema [Recovered/Resolved]
  - Somnolence [Unknown]
